FAERS Safety Report 18342394 (Version 1)
Quarter: 2020Q4

REPORT INFORMATION
  Report Type: Spontaneous
  Country: JP (occurrence: JP)
  Receive Date: 20201005
  Receipt Date: 20201005
  Transmission Date: 20210113
  Serious: Yes (Other)
  Sender: FDA-Public Use
  Company Number: JP-GLAXOSMITHKLINE-JP2020JPN175430

PATIENT
  Age: 47 Year
  Sex: Male

DRUGS (14)
  1. OLANZAPINE. [Concomitant]
     Active Substance: OLANZAPINE
     Dosage: 20 MG, QD BEFORE BEDTIME
  2. NICOTINELL [Suspect]
     Active Substance: NICOTINE
     Indication: SMOKING CESSATION THERAPY
     Dosage: 1 DF, 1D
     Route: 050
     Dates: start: 20200821, end: 2020
  3. BIOFERMIN [Concomitant]
     Active Substance: DIETARY SUPPLEMENT\PROBIOTICS
     Dosage: 36 MG, QD BEFORE BEDTIME
  4. PANTETHINE TABLETS [Concomitant]
     Dosage: 200 MG, TID AFTER EVERY MEAL
  5. ZOTEPINE [Concomitant]
     Active Substance: ZOTEPINE
     Dosage: 150 MG, BID AFTER DINNER AND BEFORE BEDTIME
  6. RIVOTRIL [Concomitant]
     Active Substance: CLONAZEPAM
     Dosage: 0.5 MG IN THE EVENING AND 1 MG BEFORE BEDTIME
  7. MAGMITT TABLET [Concomitant]
     Dosage: 500 MG, TID AFTER EVERY MEAL
  8. SHIMOTSUTO [Concomitant]
     Dosage: 2.5 G, TID AFTER EVERY MEAL
  9. BIPERIDEN HYDROCHLORIDE [Concomitant]
     Active Substance: BIPERIDEN HYDROCHLORIDE
     Dosage: 0.5 MG, QD AFTER DINNER
  10. MOSAPRIDE CITRATE TABLETS [Concomitant]
     Active Substance: MOSAPRIDE CITRATE
     Dosage: 5 MG, TID AFTER EVERY MEAL
  11. TAMSULOSIN HYDROCHLORIDE OD [Concomitant]
     Active Substance: TAMSULOSIN HYDROCHLORIDE
     Dosage: 0.2 MG, QD?AFTER BREAKFAST
  12. ZOLPIDEM TARTRATE TABLETS [Concomitant]
     Active Substance: ZOLPIDEM TARTRATE
     Dosage: 5 MG, QD BEFORE BEDTIME
  13. NICOTINELL [Suspect]
     Active Substance: NICOTINE
     Dosage: 1 DF, 1D
     Route: 050
     Dates: start: 20200902, end: 2020
  14. LODOPIN (JAPAN) [Concomitant]
     Dosage: 25 MG, QD AFTER BREAKFAST

REACTIONS (4)
  - Product use issue [Unknown]
  - Therapy cessation [Unknown]
  - Malaise [Recovered/Resolved]
  - Immobile [Recovered/Resolved]

NARRATIVE: CASE EVENT DATE: 2020
